FAERS Safety Report 16283181 (Version 1)
Quarter: 2019Q2

REPORT INFORMATION
  Report Type: Spontaneous
  Country: SE (occurrence: SE)
  Receive Date: 20190507
  Receipt Date: 20190507
  Transmission Date: 20190711
  Serious: Yes (Other)
  Sender: FDA-Public Use
  Company Number: SE-TEVA-2019-SE-1045751

PATIENT
  Age: 74 Year
  Sex: Male

DRUGS (12)
  1. ARAVA [Suspect]
     Active Substance: LEFLUNOMIDE
     Dates: start: 20110818, end: 20160503
  2. CALCICHEW-D3 SPEARMINT 500 MG/400 IE TUGGTABLETT [Concomitant]
     Dates: start: 20150602, end: 20180219
  3. PREDNISOLON PFIZER 2,5 MG TABLETT [Concomitant]
     Active Substance: PREDNISOLONE
     Dates: start: 20111206, end: 20180219
  4. SILDENAFIL STADA 50 MG FILMDRAGERAD TABLETT [Concomitant]
     Dosage: IF NECESSARY
     Dates: start: 20130911, end: 20180219
  5. PANODIL 500 MG FILMDRAGERAD TABLETT [Concomitant]
     Active Substance: ACETAMINOPHEN
     Dosage: IF NECESSARY
     Dates: start: 20131202, end: 20170809
  6. BETNOVATE [Concomitant]
     Active Substance: BETAMETHASONE
     Dosage: ACCORDING TO SPECIAL ORDINATION
     Dates: start: 20160405, end: 20171214
  7. ALENAT VECKOTABLETT  70 MG TABLETT [Concomitant]
     Active Substance: ALENDRONATE SODIUM
     Dates: start: 20150602, end: 20180219
  8. KARBAMID I LOCOBASE KR?M APL 2 % KR?M [Concomitant]
     Dosage: AND, IF NECESSARY
     Dates: start: 20151104, end: 20171214
  9. DONEPEZIL KRKA 5 MG FILMDRAGERAD TABLETT [Suspect]
     Active Substance: DONEPEZIL HYDROCHLORIDE
     Indication: DEMENTIA ALZHEIMER^S TYPE
     Dates: start: 20151208, end: 20160105
  10. ELIQUIS [Concomitant]
     Active Substance: APIXABAN
     Dates: start: 20151117, end: 20171221
  11. METOPROLOL ORION 100 MG DEPOTTABLETT [Concomitant]
     Dates: start: 20130813, end: 20180219
  12. ATORVASTATIN ACTAVIS 40 MG FILMDRAGERAD TABLETT [Suspect]
     Active Substance: ATORVASTATIN
     Dates: start: 20150516, end: 20160503

REACTIONS (1)
  - Hepatic cirrhosis [Unknown]

NARRATIVE: CASE EVENT DATE: 201605
